FAERS Safety Report 9348199 (Version 1)
Quarter: 2013Q2

REPORT INFORMATION
  Report Type: Spontaneous
  Country: US (occurrence: US)
  Receive Date: 20130614
  Receipt Date: 20130614
  Transmission Date: 20140414
  Serious: Yes (Hospitalization)
  Sender: FDA-Public Use
  Company Number: US-BAYER-2013-070153

PATIENT
  Age: 33 Year
  Sex: Female

DRUGS (7)
  1. YAZ [Suspect]
     Dosage: UNK
  2. YASMIN [Suspect]
  3. OCELLA [Suspect]
  4. DIAZEPAM [Concomitant]
  5. METHOCARBAMOL [Concomitant]
  6. OXYCODONE [Concomitant]
  7. PAXIL [Concomitant]

REACTIONS (2)
  - Pulmonary embolism [None]
  - Deep vein thrombosis [None]
